FAERS Safety Report 10745865 (Version 1)
Quarter: 2015Q1

REPORT INFORMATION
  Report Type: Spontaneous
  Country: IT (occurrence: IT)
  Receive Date: 20150128
  Receipt Date: 20150128
  Transmission Date: 20150721
  Serious: Yes (Hospitalization)
  Sender: FDA-Public Use
  Company Number: IT-ACTAVIS-2014-28112

PATIENT
  Age: 65 Year
  Sex: Female

DRUGS (7)
  1. FENTALGON [Concomitant]
     Indication: PRODUCT USED FOR UNKNOWN INDICATION
     Dosage: 25 UG
     Route: 065
  2. VINCRISTINE [Suspect]
     Active Substance: VINCRISTINE
     Indication: RHABDOMYOSARCOMA RECURRENT
     Dosage: 1.5 ?G/M2, ONCE A MONTH
     Route: 042
     Dates: start: 20141129, end: 20141129
  3. CYCLOPHOSPHAMIDE (UNKNOWN) [Suspect]
     Active Substance: CYCLOPHOSPHAMIDE
     Indication: RHABDOMYOSARCOMA RECURRENT
     Dosage: 1200 MG/M2, ONCE A MONTH
     Route: 042
     Dates: start: 20141129, end: 20141129
  4. DOXORUBICIN (UNKNOWN) [Suspect]
     Active Substance: DOXORUBICIN
     Indication: RHABDOMYOSARCOMA RECURRENT
     Dosage: 40 MG/M2, ONCE A MONTH
     Route: 042
     Dates: start: 20141129, end: 20141130
  5. OMEPRAZOLE. [Concomitant]
     Active Substance: OMEPRAZOLE
     Indication: PRODUCT USED FOR UNKNOWN INDICATION
     Dosage: 40 MG
     Route: 065
  6. LYRICA [Concomitant]
     Active Substance: PREGABALIN
     Indication: PRODUCT USED FOR UNKNOWN INDICATION
     Dosage: 25 MG
     Route: 065
  7. CLEXANE [Concomitant]
     Active Substance: ENOXAPARIN SODIUM
     Indication: PRODUCT USED FOR UNKNOWN INDICATION
     Dosage: 4000 U.I. AXA/0,4 ML
     Route: 065

REACTIONS (3)
  - Thrombocytopenia [Recovered/Resolved]
  - Febrile neutropenia [Recovered/Resolved]
  - Anaemia [Recovered/Resolved]

NARRATIVE: CASE EVENT DATE: 20141206
